FAERS Safety Report 9302177 (Version 2)
Quarter: 2013Q3

REPORT INFORMATION
  Report Type: Spontaneous
  Country: US (occurrence: US)
  Receive Date: 20130522
  Receipt Date: 20130823
  Transmission Date: 20140515
  Serious: Yes (Death, Hospitalization)
  Sender: FDA-Public Use
  Company Number: US-B.I. PHARMACEUTICALS,INC./RIDGEFIELD-2013-BI-13984BP

PATIENT
  Age: 79 Year
  Sex: Female
  Weight: 57 kg

DRUGS (6)
  1. AGGRENOX [Suspect]
     Indication: CEREBROVASCULAR ACCIDENT PROPHYLAXIS
     Dosage: STRENGTH: 25 MG / 200 MG; DAILY DOSE: 50 MG / 400 MG
     Route: 048
     Dates: start: 20130503, end: 20130503
  2. VICODIN [Concomitant]
  3. LOPRESSOR [Concomitant]
  4. VERAPAMIL [Concomitant]
  5. NORVASC [Concomitant]
  6. AMBIEN [Concomitant]

REACTIONS (2)
  - Haemorrhagic transformation stroke [Fatal]
  - Headache [Not Recovered/Not Resolved]
